FAERS Safety Report 4934702-5 (Version None)
Quarter: 2006Q1

REPORT INFORMATION
  Report Type: 
  Country: None (occurrence: None)
  Receive Date: 20060307
  Receipt Date: 20051207
  Transmission Date: 20060701
  Serious: Yes (Hospitalization, Other)
  Sender: FDA-Public Use
  Company Number: US-MERCK-0512USA01370

PATIENT
  Age: 59 Year
  Sex: Male

DRUGS (1)
  1. VIOXX [Suspect]
     Route: 048
     Dates: start: 20010606, end: 20040714

REACTIONS (5)
  - ANGINA PECTORIS [None]
  - BACK PAIN [None]
  - CARDIAC DISORDER [None]
  - COLONIC POLYP [None]
  - MYOCARDIAL INFARCTION [None]
